FAERS Safety Report 7736882 (Version 3)
Quarter: 2017Q1

REPORT INFORMATION
  Report Type: Spontaneous
  Country: FR (occurrence: FR)
  Receive Date: 20101223
  Receipt Date: 20170110
  Transmission Date: 20170429
  Serious: Yes (Hospitalization)
  Sender: FDA-Public Use
  Company Number: FR-ASTRAZENECA-2010SE59852

PATIENT
  Age: 54 Year
  Sex: Male

DRUGS (9)
  1. CORDARONE [Suspect]
     Active Substance: AMIODARONE HYDROCHLORIDE
     Route: 048
     Dates: start: 20101121, end: 20101207
  2. TAHOR [Suspect]
     Active Substance: ATORVASTATIN CALCIUM
     Route: 048
     Dates: start: 20101115, end: 20101205
  3. PREDNISONE. [Suspect]
     Active Substance: PREDNISONE
     Route: 048
     Dates: start: 20101110
  4. BACTRIM [Suspect]
     Active Substance: SULFAMETHOXAZOLE\TRIMETHOPRIM
     Route: 048
     Dates: start: 20101124, end: 20101207
  5. SANDIMMUN [Suspect]
     Active Substance: CYCLOSPORINE
     Route: 048
     Dates: start: 20101110
  6. CELLCEPT [Suspect]
     Active Substance: MYCOPHENOLATE MOFETIL\MYCOPHENOLATE MOFETIL HYDROCHLORIDE
     Route: 048
     Dates: start: 20101110, end: 20101207
  7. INEXIUM [Suspect]
     Active Substance: ESOMEPRAZOLE
     Route: 048
     Dates: start: 20101115
  8. LASILIX SPECIAL [Suspect]
     Active Substance: FUROSEMIDE
     Route: 048
     Dates: start: 20101120, end: 20101207
  9. CYMEVAN [Suspect]
     Active Substance: GANCICLOVIR
     Route: 042
     Dates: start: 20101122

REACTIONS (1)
  - Hepatocellular injury [Not Recovered/Not Resolved]

NARRATIVE: CASE EVENT DATE: 20101202
